FAERS Safety Report 10146792 (Version 4)
Quarter: 2015Q2

REPORT INFORMATION
  Report Type: Report from Study
  Country: PL (occurrence: PL)
  Receive Date: 20140501
  Receipt Date: 20150626
  Transmission Date: 20150821
  Serious: Yes (Hospitalization)
  Sender: FDA-Public Use
  Company Number: PL-UCBSA-115092

PATIENT
  Age: 56 Year
  Sex: Female
  Weight: 77 kg

DRUGS (6)
  1. FOLIC ACID. [Concomitant]
     Active Substance: FOLIC ACID
     Indication: PROPHYLAXIS
     Dosage: DOSE: 15 MG QS
     Route: 048
     Dates: start: 20130613
  2. METHOTREXATE [Concomitant]
     Active Substance: METHOTREXATE
     Indication: RHEUMATOID ARTHRITIS
     Dosage: DOSE: 25 MG QS
     Route: 048
     Dates: start: 20130722, end: 20140313
  3. METYPRED [Concomitant]
     Active Substance: METHYLPREDNISOLONE
     Indication: RHEUMATOID ARTHRITIS
     Dosage: 8 MG, ONCE DAILY (QD)
     Route: 048
     Dates: start: 20120515
  4. CERTOLIZUMAB PEGOL RA [Suspect]
     Active Substance: CERTOLIZUMAB PEGOL
     Indication: RHEUMATOID ARTHRITIS
     Dosage: NO OF DOSES RECIEVED: 3
     Route: 058
     Dates: start: 20130612, end: 20130712
  5. CERTOLIZUMAB PEGOL RA [Suspect]
     Active Substance: CERTOLIZUMAB PEGOL
     Dosage: NO OF DOSES RECEIVED: 24
     Route: 058
     Dates: start: 20130724, end: 20140320
  6. METHOTREXATE [Concomitant]
     Active Substance: METHOTREXATE
     Dosage: DOSE: 25 MG QS
     Route: 048
     Dates: start: 20140328

REACTIONS (1)
  - Appendiceal abscess [Recovered/Resolved]

NARRATIVE: CASE EVENT DATE: 20140314
